FAERS Safety Report 14454191 (Version 3)
Quarter: 2018Q1

REPORT INFORMATION
  Report Type: Spontaneous
  Country: US (occurrence: US)
  Receive Date: 20180129
  Receipt Date: 20180315
  Transmission Date: 20180509
  Serious: No
  Sender: FDA-Public Use
  Company Number: PHEH2018US002114

PATIENT
  Sex: Male
  Weight: 103.8 kg

DRUGS (2)
  1. MUCINEX [Concomitant]
     Active Substance: GUAIFENESIN
     Indication: PRODUCT USED FOR UNKNOWN INDICATION
     Dosage: UNK
     Route: 048
  2. AMOXCLAV SANDOZ [Suspect]
     Active Substance: AMOXICILLIN\CLAVULANATE POTASSIUM
     Indication: VIRAL INFECTION
     Dosage: 1 DF, Q12H
     Route: 048

REACTIONS (5)
  - Wrong technique in product usage process [Unknown]
  - Foreign body in respiratory tract [Not Recovered/Not Resolved]
  - Oropharyngeal pain [Not Recovered/Not Resolved]
  - Product taste abnormal [Unknown]
  - Product physical issue [Unknown]
